FAERS Safety Report 17671186 (Version 12)
Quarter: 2020Q2

REPORT INFORMATION
  Report Type: Report from Study
  Country: None (occurrence: CH)
  Receive Date: 20200415
  Receipt Date: 20200526
  Transmission Date: 20200713
  Serious: Yes (Hospitalization, Other)
  Sender: FDA-Public Use
  Company Number: CH-ABBVIE-20K-151-3363815-00

PATIENT
  Age: 76 Year
  Sex: Female

DRUGS (14)
  1. DUODOPA [Suspect]
     Active Substance: CARBIDOPA\LEVODOPA
     Dosage: MD: 5 ML, CR DAY: 1.8 ML/H, CONTINUOUS RATE NIGHT: 1.0 ML/H, ED: 1.0 ML, 24 H THERAPY
     Route: 050
     Dates: start: 20200420, end: 20200426
  2. DUODOPA [Suspect]
     Active Substance: CARBIDOPA\LEVODOPA
     Dosage: MORNING DOSE:4 ML, CR DAY: 1.5 ML/H, CR NIGHT: 0 ML/H, EXTRA DOSE: 0.7 ML, 16 H THERAPY
     Route: 050
     Dates: start: 20200409, end: 202004
  3. DUODOPA [Suspect]
     Active Substance: CARBIDOPA\LEVODOPA
     Dosage: MD : 5 ML, CD DAY: 1.3 ML/H, ED: 1.0 ML?16 H THERAPY?20 MG/ML 5 MG/ML
     Route: 050
     Dates: start: 20200509
  4. DUODOPA [Suspect]
     Active Substance: CARBIDOPA\LEVODOPA
     Indication: PARKINSON^S DISEASE
     Route: 050
     Dates: start: 20181002, end: 20200227
  5. DUODOPA [Suspect]
     Active Substance: CARBIDOPA\LEVODOPA
     Dosage: MD: 4 ML, CR DAY: 1.3 ML/H, CR NIGHT: 0 ML/H, EXTRA DOSE: 0.7 ML,16 H THERAPY
     Route: 050
     Dates: start: 20200227, end: 20200409
  6. DUODOPA [Suspect]
     Active Substance: CARBIDOPA\LEVODOPA
     Dosage: MD: NOT GIVEN, CR DAY: 2.0 ML/H, CR NIGHT: 0 ML/H, EXTRA DOSE: 1.0 ML,
     Route: 050
     Dates: start: 20200412, end: 202004
  7. DUODOPA [Suspect]
     Active Substance: CARBIDOPA\LEVODOPA
     Dosage: MORNING DOSE: 5 ML, CONTINUOUS RATE DAY: 1.5 ML/H, EXTRA DOSE: 1.0 ML 16 H THERAPY
     Route: 050
     Dates: start: 20200426, end: 202004
  8. DUODOPA [Suspect]
     Active Substance: CARBIDOPA\LEVODOPA
     Dosage: MORNING DOSE:4.6ML,CR DAY:1.7 ML/H, CR NIGHT: 0 ML/H, EXTRA DOSE: 0.7 ML,16 H THERAPY
     Route: 050
     Dates: start: 202004, end: 20200412
  9. DUODOPA [Suspect]
     Active Substance: CARBIDOPA\LEVODOPA
     Dosage: MD: 5 ML, CRD:2.0 ML/H,?CONTINUOUS RATE NIGHT:0 ML/H, ED: 1.0 ML,16H THERAPY
     Route: 050
     Dates: start: 20200413, end: 202004
  10. DUODOPA [Suspect]
     Active Substance: CARBIDOPA\LEVODOPA
     Dosage: MORNING DOSE: 5 ML, CONTINUOUS RATE DAY: 1.3 ML/H, EXTRA DOSE: 1.0 ML?16 H THERAPY
     Route: 050
     Dates: start: 20200429, end: 20200508
  11. PK-MERZ [Concomitant]
     Active Substance: AMANTADINE
     Dosage: 1X 250ML/DAY
     Dates: start: 20200418, end: 20200420
  12. DUODOPA [Suspect]
     Active Substance: CARBIDOPA\LEVODOPA
     Dosage: MD: 5 ML, CRD:2.0 ML/H, CONTINUOUS RATE NIGHT:2 ML/H, ED: 1.0 ML 24H THERAPY
     Route: 050
     Dates: start: 202004, end: 202004
  13. DUODOPA [Suspect]
     Active Substance: CARBIDOPA\LEVODOPA
     Dosage: CONTINUOUS RATE DAY: 1.3 ML/H, EXTRA DOSE: 1.0 ML?16 H THERAPY
     Route: 050
     Dates: start: 20200508, end: 20200508
  14. PK-MERZ [Concomitant]
     Active Substance: AMANTADINE
     Indication: PRODUCT USED FOR UNKNOWN INDICATION
     Dosage: 2X 250ML/DAY
     Route: 042
     Dates: end: 20200418

REACTIONS (19)
  - Speech disorder [Unknown]
  - Clostridial infection [Not Recovered/Not Resolved]
  - Device occlusion [Recovered/Resolved]
  - Hyperkinesia [Not Recovered/Not Resolved]
  - Device occlusion [Recovered/Resolved]
  - C-reactive protein increased [Recovered/Resolved]
  - C-reactive protein increased [Recovering/Resolving]
  - Coronavirus infection [Recovered/Resolved]
  - Fibrin D dimer increased [Recovered/Resolved]
  - Akinesia [Not Recovered/Not Resolved]
  - Constipation [Recovered/Resolved]
  - Urinary tract infection [Recovered/Resolved]
  - Restlessness [Unknown]
  - Unresponsive to stimuli [Recovered/Resolved]
  - General physical health deterioration [Unknown]
  - Infection [Recovering/Resolving]
  - Wrong technique in device usage process [Recovered/Resolved]
  - Hypernatraemia [Not Recovered/Not Resolved]
  - Hallucination [Unknown]

NARRATIVE: CASE EVENT DATE: 20200408
